FAERS Safety Report 21476216 (Version 2)
Quarter: 2022Q4

REPORT INFORMATION
  Report Type: Report from Study
  Country: JP (occurrence: JP)
  Receive Date: 20221019
  Receipt Date: 20221128
  Transmission Date: 20230112
  Serious: Yes (Hospitalization)
  Sender: FDA-Public Use
  Company Number: JP-ABBVIE-20K-087-3595415-00

PATIENT
  Age: 54 Year
  Sex: Male
  Weight: 83 kg

DRUGS (6)
  1. RINVOQ [Suspect]
     Active Substance: UPADACITINIB
     Indication: Product used for unknown indication
     Dosage: 15 MILLIGRAM
     Route: 048
     Dates: start: 20201027
  2. RINVOQ [Suspect]
     Active Substance: UPADACITINIB
     Indication: Product used for unknown indication
     Dosage: 15 MILLIGRAM
     Dates: start: 20200901, end: 20200929
  3. IGURATIMOD [Concomitant]
     Active Substance: IGURATIMOD
     Indication: Product used for unknown indication
     Dosage: 50 MILLIGRAM
  4. PREDNISOLONE [Concomitant]
     Active Substance: PREDNISOLONE
     Indication: Product used for unknown indication
  5. ISONIAZID [Concomitant]
     Active Substance: ISONIAZID
     Indication: Product used for unknown indication
     Dosage: 200 MILLIGRAM
     Route: 048
  6. ACTEMRA [Suspect]
     Active Substance: TOCILIZUMAB
     Indication: Product used for unknown indication
     Route: 065

REACTIONS (1)
  - Diverticulitis [Recovering/Resolving]

NARRATIVE: CASE EVENT DATE: 20200929
